FAERS Safety Report 8999410 (Version 2)
Quarter: 2013Q1

REPORT INFORMATION
  Report Type: Spontaneous
  Country: US (occurrence: US)
  Receive Date: 20130103
  Receipt Date: 20130107
  Transmission Date: 20140127
  Serious: No
  Sender: FDA-Public Use
  Company Number: US-ELI_LILLY_AND_COMPANY-US201212007982

PATIENT
  Sex: Female

DRUGS (2)
  1. FORTEO [Suspect]
     Dosage: UNK, QD
     Dates: start: 201212
  2. FORTEO [Suspect]
     Dosage: UNK, QD
     Dates: start: 20121218

REACTIONS (3)
  - Constipation [Unknown]
  - Pain [Unknown]
  - Injection site bruising [Unknown]
